FAERS Safety Report 11751020 (Version 1)
Quarter: 2015Q4

REPORT INFORMATION
  Report Type: Spontaneous
  Country: US (occurrence: US)
  Receive Date: 20151118
  Receipt Date: 20151118
  Transmission Date: 20160304
  Serious: Yes (Hospitalization, Other)
  Sender: FDA-Public Use
  Company Number: US-NOVOPROD-452355

PATIENT
  Age: 15 Year
  Sex: Female

DRUGS (3)
  1. NOVOLOG [Suspect]
     Active Substance: INSULIN ASPART
     Indication: PRODUCT USED FOR UNKNOWN INDICATION
     Dosage: UNK
     Route: 058
     Dates: start: 201308, end: 201411
  2. NOVOLOG [Suspect]
     Active Substance: INSULIN ASPART
     Dosage: STILL USING PERIODICALLY
     Route: 058
  3. NOVOLOG [Suspect]
     Active Substance: INSULIN ASPART
     Dosage: DOSAGE HAD TO BE TRIPLED
     Route: 058
     Dates: start: 201411

REACTIONS (3)
  - Drug ineffective [Unknown]
  - Diabetes mellitus inadequate control [Unknown]
  - Blood ketone body [Unknown]
